FAERS Safety Report 8798104 (Version 1)
Quarter: 2012Q4

REPORT INFORMATION
  Report Type: Report from Study
  Country: GB (occurrence: GB)
  Receive Date: 20120920
  Receipt Date: 20120920
  Transmission Date: 20130627
  Serious: Yes (Disabling)
  Sender: FDA-Public Use
  Company Number: GB-009507513-2012SP029150

PATIENT
  Age: 47 Year
  Sex: Male
  Weight: 79.6 kg

DRUGS (4)
  1. RIBAVIRIN [Suspect]
     Indication: HEPATITIS C
     Dosage: 600 mg, BID
     Route: 048
     Dates: start: 20120206
  2. STUDY DRUG (UNSPECIFIED) [Suspect]
     Indication: HEPATITIS C
     Dosage: 1 DF, QD
     Route: 065
     Dates: start: 20120206
  3. STUDY DRUG (UNSPECIFIED) [Suspect]
     Indication: HEPATITIS C
     Dosage: 1 DF, QW
     Route: 058
     Dates: start: 20120206
  4. PEGINTERFERON ALFA-2A [Suspect]
     Indication: HEPATITIS C
     Dosage: 1 DF, QW
     Route: 058
     Dates: start: 20120206

REACTIONS (1)
  - Anxiety [Recovered/Resolved]
